FAERS Safety Report 4345648-8 (Version None)
Quarter: 2004Q2

REPORT INFORMATION
  Report Type: 
  Country: None (occurrence: None)
  Receive Date: 20040421
  Receipt Date: 20040416
  Transmission Date: 20050107
  Serious: Yes (Hospitalization)
  Sender: FDA-Public Use
  Company Number: 2004-04-0796

PATIENT
  Sex: Female

DRUGS (3)
  1. PEG-INTRON [Suspect]
     Indication: HEPATITIS C
     Dosage: SUBCUTANEOUS
     Route: 058
     Dates: start: 20031014, end: 20040330
  2. REBETOL [Suspect]
     Indication: HEPATITIS C
     Dosage: ORAL
     Route: 048
     Dates: start: 20031014, end: 20040330
  3. OXYCONTIN [Concomitant]

REACTIONS (5)
  - ANAEMIA [None]
  - ARTHRALGIA [None]
  - DIFFICULTY IN WALKING [None]
  - HYPOAESTHESIA [None]
  - WHITE BLOOD CELL COUNT DECREASED [None]
